FAERS Safety Report 8739852 (Version 3)
Quarter: 2013Q4

REPORT INFORMATION
  Report Type: Spontaneous
  Country: US (occurrence: US)
  Receive Date: 20120823
  Receipt Date: 20131031
  Transmission Date: 20140711
  Serious: Yes (Death)
  Sender: FDA-Public Use
  Company Number: US-009507513-1208USA007067

PATIENT
  Age: 44 Year
  Sex: Male

DRUGS (4)
  1. ISENTRESS [Suspect]
     Indication: ACQUIRED IMMUNODEFICIENCY SYNDROME
     Dosage: 400 MG, BID
     Route: 048
     Dates: end: 201207
  2. TRUVADA [Concomitant]
  3. NORVIR [Concomitant]
  4. PREZISTA [Concomitant]

REACTIONS (1)
  - Death [Fatal]
